FAERS Safety Report 9634004 (Version 2)
Quarter: 2013Q4

REPORT INFORMATION
  Report Type: Spontaneous
  Country: US (occurrence: US)
  Receive Date: 20131021
  Receipt Date: 20131022
  Transmission Date: 20140711
  Serious: No
  Sender: FDA-Public Use
  Company Number: US-009507513-1310USA007042

PATIENT
  Age: 21 Year
  Sex: Female
  Weight: 93.97 kg

DRUGS (1)
  1. NEXPLANON [Suspect]
     Indication: CONTRACEPTION
     Dosage: ^68 MG/ONE ROD EVERY THREE YEARS^
     Route: 059
     Dates: start: 20120725, end: 20131010

REACTIONS (2)
  - Discomfort [Recovered/Resolved]
  - Device breakage [Recovered/Resolved]
